FAERS Safety Report 8929032 (Version 1)
Quarter: 2012Q4

REPORT INFORMATION
  Report Type: 
  Country: CA (occurrence: CA)
  Receive Date: 20121127
  Receipt Date: 20121127
  Transmission Date: 20130627
  Serious: Yes (Other)
  Sender: FDA-Public Use
  Company Number: CHPA2012CA023815

PATIENT
  Age: 83 Year
  Sex: Female

DRUGS (3)
  1. AMMONIUM CARBONATE\CAMPHOR\HERBALS\MENTHOL\POTASSIUM BICARBONATE [Suspect]
     Indication: COUGH
     Dosage: 1 tsp at bedtime, as needed
     Route: 048
  2. DEXTROMETHORPHAN HYDROBROMIDE [Suspect]
     Indication: COUGH
     Dosage: Unk, Unk
     Route: 048
  3. GUAIFENESIN\MENTHOL [Suspect]
     Indication: COUGH
     Dosage: Unk, Unk

REACTIONS (3)
  - Retinal detachment [Recovered/Resolved]
  - Blindness [Not Recovered/Not Resolved]
  - Dizziness [Recovered/Resolved]
